FAERS Safety Report 12428913 (Version 2)
Quarter: 2016Q2

REPORT INFORMATION
  Report Type: Spontaneous
  Country: US (occurrence: US)
  Receive Date: 20160602
  Receipt Date: 20160614
  Transmission Date: 20160815
  Serious: No
  Sender: FDA-Public Use
  Company Number: US-BAYER-2016-102505

PATIENT
  Age: 89 Year
  Sex: Female
  Weight: 68.27 kg

DRUGS (2)
  1. MIRALAX [Suspect]
     Active Substance: POLYETHYLENE GLYCOL 3350
     Indication: CONSTIPATION
     Dosage: 1 DF, BID
     Route: 048
     Dates: start: 2015, end: 20160526
  2. MIRAFIBER SUGAR FREE ORANGE POWDER [Suspect]
     Active Substance: METHYLCELLULOSES
     Indication: FLATULENCE
     Dosage: UNK

REACTIONS (4)
  - Product use issue [None]
  - Product use issue [None]
  - Flatulence [None]
  - Incorrect drug administration duration [None]

NARRATIVE: CASE EVENT DATE: 2015
